FAERS Safety Report 25672588 (Version 3)
Quarter: 2025Q3

REPORT INFORMATION
  Report Type: Spontaneous
  Country: US (occurrence: US)
  Receive Date: 20250812
  Receipt Date: 20250908
  Transmission Date: 20251020
  Serious: No
  Sender: SANOFI AVENTIS
  Company Number: US-SA-2025SA235034

PATIENT
  Age: 37 Year
  Sex: Female

DRUGS (2)
  1. DUPIXENT [Suspect]
     Active Substance: DUPILUMAB
     Indication: Idiopathic urticaria
     Route: 058
     Dates: start: 202505, end: 202505
  2. DUPIXENT [Suspect]
     Active Substance: DUPILUMAB
     Indication: Dermatitis
     Dosage: 300 MG, QOW
     Route: 058
     Dates: start: 202506

REACTIONS (11)
  - Mesenteric lymphadenitis [Unknown]
  - General physical health deterioration [Unknown]
  - Mental disorder [Unknown]
  - Lymphadenopathy [Recovered/Resolved]
  - Abdominal pain upper [Recovered/Resolved]
  - Hordeolum [Recovered/Resolved]
  - Headache [Recovered/Resolved]
  - Swelling of eyelid [Unknown]
  - Myalgia [Unknown]
  - Conjunctivitis [Unknown]
  - Product use in unapproved indication [Unknown]

NARRATIVE: CASE EVENT DATE: 20250101
